FAERS Safety Report 8182076-1 (Version None)
Quarter: 2012Q1

REPORT INFORMATION
  Report Type: 
  Country: None (occurrence: None)
  Receive Date: 20120302
  Receipt Date: 20120228
  Transmission Date: 20120608
  Serious: Yes (Other)
  Sender: FDA-Public Use
  Company Number: HR-MERCK-1107USA00566

PATIENT
  Age: 60 Year
  Sex: Female

DRUGS (2)
  1. STATIN (UNSPECIFIED) [Concomitant]
     Indication: DYSLIPIDAEMIA
     Route: 065
  2. JANUVIA [Suspect]
     Indication: DIABETES MELLITUS
     Route: 048
     Dates: start: 20110201, end: 20110301

REACTIONS (3)
  - ABASIA [None]
  - MUSCULAR WEAKNESS [None]
  - MYALGIA [None]
